FAERS Safety Report 23681301 (Version 1)
Quarter: 2024Q1

REPORT INFORMATION
  Report Type: Spontaneous
  Country: CN (occurrence: CN)
  Receive Date: 20240328
  Receipt Date: 20240328
  Transmission Date: 20240410
  Serious: Yes (Other)
  Sender: FDA-Public Use
  Company Number: CN-SUN PHARMACEUTICAL INDUSTRIES LTD-2024R1-439461

PATIENT
  Age: 67 Year
  Sex: Male

DRUGS (2)
  1. CARBOPLATIN [Suspect]
     Active Substance: CARBOPLATIN
     Indication: Chemotherapy
     Dosage: UNK (500 MG, Q3W FOR 6 CYCLES)
     Route: 065
     Dates: start: 20210805, end: 20211202
  2. PEMETREXED [Suspect]
     Active Substance: PEMETREXED
     Indication: Chemotherapy
     Dosage: UNK (900 MG, Q3W FOR  6 CYCLES)
     Route: 065
     Dates: start: 20210805, end: 20211202

REACTIONS (3)
  - Malignant pleural effusion [Recovered/Resolved]
  - Impaired quality of life [Unknown]
  - Disease progression [Unknown]
